FAERS Safety Report 12549145 (Version 1)
Quarter: 2016Q3

REPORT INFORMATION
  Report Type: Spontaneous
  Country: CH (occurrence: CH)
  Receive Date: 20160712
  Receipt Date: 20160712
  Transmission Date: 20161109
  Serious: Yes (Hospitalization)
  Sender: FDA-Public Use
  Company Number: CH-MEDA-2016070027

PATIENT
  Age: 65 Year
  Sex: Male

DRUGS (8)
  1. TOREM 200 MG (TORASEMIDE) [Suspect]
     Active Substance: TORSEMIDE
     Indication: CHRONIC KIDNEY DISEASE
     Route: 048
     Dates: start: 20151001, end: 20151020
  2. VITAMIN D3 [Concomitant]
     Active Substance: CHOLECALCIFEROL
  3. PANTOPRAZOL [Suspect]
     Active Substance: PANTOPRAZOLE SODIUM
     Indication: PROPHYLAXIS
     Route: 048
     Dates: start: 20150901, end: 20151019
  4. NEPHROTRANS [Suspect]
     Active Substance: SODIUM BICARBONATE
     Indication: CHRONIC KIDNEY DISEASE
     Route: 048
     Dates: start: 2015, end: 20151020
  5. ATORVASTATIN [Concomitant]
     Active Substance: ATORVASTATIN
  6. ZYLORIC [Concomitant]
     Active Substance: ALLOPURINOL
  7. AMLODIPIN [Concomitant]
     Active Substance: AMLODIPINE BESYLATE
  8. QUETIAPIN [Concomitant]
     Active Substance: QUETIAPINE

REACTIONS (9)
  - Inflammation [None]
  - Diverticulum intestinal [None]
  - Hypocalcaemia [Recovered/Resolved]
  - Chills [None]
  - Seizure [None]
  - Hyperventilation [None]
  - Hypomagnesaemia [Recovered/Resolved]
  - Muscle spasms [None]
  - Condition aggravated [None]

NARRATIVE: CASE EVENT DATE: 20151019
